FAERS Safety Report 17110523 (Version 3)
Quarter: 2019Q4

REPORT INFORMATION
  Report Type: Report from Study
  Country: US (occurrence: US)
  Receive Date: 20191204
  Receipt Date: 20191223
  Transmission Date: 20200122
  Serious: Yes (Hospitalization)
  Sender: FDA-Public Use
  Company Number: US-B.I. PHARMACEUTICALS,INC./RIDGEFIELD-2019-MR-115464

PATIENT
  Age: 73 Year
  Sex: Female

DRUGS (3)
  1. OFEV [Suspect]
     Active Substance: NINTEDANIB
     Route: 065
     Dates: end: 20191210
  2. OFEV [Suspect]
     Active Substance: NINTEDANIB
     Indication: IDIOPATHIC PULMONARY FIBROSIS
     Route: 065
     Dates: start: 20191119
  3. OFEV [Suspect]
     Active Substance: NINTEDANIB
     Dosage: 150 MG
     Route: 048
     Dates: start: 20191120, end: 20191204

REACTIONS (7)
  - Haematoma [Recovered/Resolved]
  - Fatigue [Recovering/Resolving]
  - Dizziness [Not Recovered/Not Resolved]
  - Fall [Recovering/Resolving]
  - Constipation [Recovered/Resolved]
  - Haematoma [Recovering/Resolving]
  - Constipation [Recovering/Resolving]

NARRATIVE: CASE EVENT DATE: 201911
